FAERS Safety Report 4543871-0 (Version None)
Quarter: 2005Q1

REPORT INFORMATION
  Report Type: 
  Country: None (occurrence: None)
  Receive Date: 20050104
  Receipt Date: 20041223
  Transmission Date: 20050727
  Serious: Yes (Hospitalization)
  Sender: FDA-Public Use
  Company Number: 200414842FR

PATIENT
  Age: 9 Year
  Sex: Male
  Weight: 30 kg

DRUGS (9)
  1. FLAGYL [Suspect]
     Route: 042
     Dates: start: 20041125
  2. SOLU-MEDROL [Suspect]
     Route: 042
     Dates: start: 20041125
  3. CELLCEPT [Suspect]
     Route: 042
     Dates: start: 20041125, end: 20041207
  4. ACETAMINOPHEN [Suspect]
     Route: 042
     Dates: start: 20041125, end: 20041207
  5. CYMEVAN [Suspect]
     Route: 042
     Dates: start: 20041125
  6. MOPRAL [Suspect]
     Route: 042
     Dates: start: 20041125
  7. LOVENOX [Concomitant]
  8. TIENAM [Concomitant]
     Route: 042
  9. NUBAIN [Concomitant]

REACTIONS (1)
  - PANCREATITIS [None]
